FAERS Safety Report 24041676 (Version 5)
Quarter: 2024Q4

REPORT INFORMATION
  Report Type: Spontaneous
  Country: US (occurrence: US)
  Receive Date: 20240702
  Receipt Date: 20241118
  Transmission Date: 20250115
  Serious: Yes (Other)
  Sender: VIIV
  Company Number: US-ViiV Healthcare Limited-113271

PATIENT

DRUGS (3)
  1. DOVATO [Suspect]
     Active Substance: DOLUTEGRAVIR SODIUM\LAMIVUDINE
     Indication: HIV infection
     Dosage: UNK
     Route: 048
     Dates: start: 20231218, end: 202404
  2. SYMTUZA [Concomitant]
     Active Substance: COBICISTAT\DARUNAVIR\EMTRICITABINE\TENOFOVIR ALAFENAMIDE
     Indication: HIV infection
     Dosage: 1 DF, QD, 800-150-200-10 MG
     Route: 048
  3. CALCIUM\CHOLECALCIFEROL [Concomitant]
     Active Substance: CALCIUM\CHOLECALCIFEROL
     Indication: Product used for unknown indication
     Dosage: UNK, 600-10 MG-MCG
     Route: 048

REACTIONS (12)
  - Graves^ disease [Not Recovered/Not Resolved]
  - Hyperthyroidism [Recovering/Resolving]
  - Bicytopenia [Unknown]
  - Pneumonia [Unknown]
  - Hyperkalaemia [Unknown]
  - Leukopenia [Unknown]
  - Pancytopenia [Unknown]
  - Anaemia [Unknown]
  - Hepatic steatosis [Unknown]
  - Type V hyperlipidaemia [Unknown]
  - Osteoporosis [Unknown]
  - Transaminases increased [Unknown]

NARRATIVE: CASE EVENT DATE: 20240301
